FAERS Safety Report 5350810-1 (Version None)
Quarter: 2007Q2

REPORT INFORMATION
  Report Type: 
  Country: None (occurrence: None)
  Receive Date: 20070606
  Receipt Date: 20070606
  Transmission Date: 20071010
  Serious: Yes (Other)
  Sender: FDA-Public Use
  Company Number: None

PATIENT
  Sex: Female
  Weight: 101.1521 kg

DRUGS (1)
  1. BUSPAR [Suspect]
     Indication: ANXIETY
     Dosage: 5 MG FOUR TIMES DAILY PO
     Route: 048
     Dates: start: 20070516, end: 20070519

REACTIONS (7)
  - CHEST DISCOMFORT [None]
  - CONFUSIONAL STATE [None]
  - DIZZINESS [None]
  - DYSPNOEA [None]
  - HEADACHE [None]
  - ILL-DEFINED DISORDER [None]
  - TREMOR [None]
